FAERS Safety Report 5150738-6 (Version None)
Quarter: 2006Q4

REPORT INFORMATION
  Report Type: 
  Country: None (occurrence: None)
  Receive Date: 20061114
  Receipt Date: 20060103
  Transmission Date: 20070319
  Serious: Yes (Death, Other)
  Sender: FDA-Public Use
  Company Number: 2006GB00011

PATIENT
  Age: 60 Year
  Sex: Male

DRUGS (6)
  1. LIDOCAINE [Suspect]
     Indication: PLANTAR FASCIITIS
     Route: 030
     Dates: start: 20051206, end: 20051206
  2. KENALOG [Suspect]
     Indication: PLANTAR FASCIITIS
     Route: 030
     Dates: start: 20051206, end: 20051206
  3. ALVERINE [Concomitant]
     Indication: IRRITABLE BOWEL SYNDROME
     Route: 048
     Dates: start: 20050819
  4. ISPAGHULA HUSK [Concomitant]
     Indication: IRRITABLE BOWEL SYNDROME
     Route: 048
     Dates: start: 20050729
  5. OMEPRAZOLE [Concomitant]
     Indication: REFLUX OESOPHAGITIS
     Route: 048
     Dates: start: 20050729
  6. TAMSULOSIN HCL [Concomitant]
     Indication: BENIGN PROSTATIC HYPERPLASIA
     Route: 048
     Dates: start: 20050914

REACTIONS (8)
  - ANAPHYLACTIC REACTION [None]
  - ANAPHYLACTIC SHOCK [None]
  - CARDIO-RESPIRATORY ARREST [None]
  - CHOKING [None]
  - CIRCULATORY COLLAPSE [None]
  - DYSGEUSIA [None]
  - PARAESTHESIA [None]
  - SUDDEN DEATH [None]
